FAERS Safety Report 23123218 (Version 1)
Quarter: 2023Q4

REPORT INFORMATION
  Report Type: Report from Study
  Country: US (occurrence: US)
  Receive Date: 20231030
  Receipt Date: 20231030
  Transmission Date: 20240109
  Serious: Yes (Hospitalization, Other)
  Sender: FDA-Public Use
  Company Number: US-ABBVIE-5462577

PATIENT
  Age: 45 Year
  Sex: Female

DRUGS (3)
  1. LUMIGAN [Suspect]
     Active Substance: BIMATOPROST
     Indication: Glaucoma
     Route: 047
     Dates: start: 2013
  2. LUMIGAN [Suspect]
     Active Substance: BIMATOPROST
     Dosage: START DATE: 2014-2015?LAST ADMIN DATE: ABOUT 7 YEARS AGO
     Route: 047
     Dates: end: 2016
  3. TIMOPTIC [Concomitant]
     Active Substance: TIMOLOL MALEATE
     Indication: Glaucoma
     Dosage: START DATE: 2014-2015
     Dates: end: 2016

REACTIONS (10)
  - Retinal haemorrhage [Recovered/Resolved]
  - Ocular discomfort [Unknown]
  - Drug ineffective [Unknown]
  - Burning sensation [Unknown]
  - Haemorrhage [Unknown]
  - Adhesion [Unknown]
  - Eye pain [Unknown]
  - Retinal detachment [Recovered/Resolved]
  - Ocular hyperaemia [Unknown]
  - Blindness unilateral [Unknown]

NARRATIVE: CASE EVENT DATE: 20211001
